FAERS Safety Report 9188945 (Version 1)
Quarter: 2013Q1

REPORT INFORMATION
  Report Type: Spontaneous
  Country: GB (occurrence: GB)
  Receive Date: 20130326
  Receipt Date: 20130326
  Transmission Date: 20140127
  Serious: Yes (Other)
  Sender: FDA-Public Use
  Company Number: GB-RANBAXY-2013R1-66533

PATIENT
  Age: 11 Month
  Sex: Female
  Weight: 7.7 kg

DRUGS (1)
  1. AMOXICILLIN [Suspect]
     Indication: EAR INFECTION
     Dosage: UNK
     Route: 048
     Dates: start: 20130227, end: 20130302

REACTIONS (1)
  - Crying [Not Recovered/Not Resolved]
